FAERS Safety Report 22944114 (Version 2)
Quarter: 2024Q3

REPORT INFORMATION
  Report Type: Spontaneous
  Country: US (occurrence: US)
  Receive Date: 20230914
  Receipt Date: 20240701
  Transmission Date: 20241016
  Serious: No
  Sender: NOVARTIS
  Company Number: US-SANDOZ-SDZ2023US026177

PATIENT
  Age: 39 Year
  Sex: Male

DRUGS (7)
  1. CYCLOSPORINE [Suspect]
     Active Substance: CYCLOSPORINE
     Indication: Urticaria cholinergic
     Dosage: 1 MG/KG, QD
     Route: 065
  2. CYCLOSPORINE [Suspect]
     Active Substance: CYCLOSPORINE
     Dosage: 3 MG/KG, QD
     Route: 065
  3. CETIRIZINE [Concomitant]
     Active Substance: CETIRIZINE HYDROCHLORIDE
     Indication: Product used for unknown indication
     Dosage: 10 MG, BID
     Route: 065
  4. FEXOFENADINE [Concomitant]
     Active Substance: FEXOFENADINE HYDROCHLORIDE
     Indication: Product used for unknown indication
     Dosage: 180 MG, QD
     Route: 065
  5. RANITIDINE [Concomitant]
     Active Substance: RANITIDINE
     Indication: Product used for unknown indication
     Dosage: 150 MG, BID
     Route: 065
  6. MONTELUKAST [Concomitant]
     Active Substance: MONTELUKAST SODIUM
     Indication: Urticaria cholinergic
     Dosage: 10 MG, QD
     Route: 065
  7. HYDROXYZINE HYDROCHLORIDE [Concomitant]
     Active Substance: HYDROXYZINE HYDROCHLORIDE
     Indication: Product used for unknown indication
     Dosage: 25 MG, QD (EVERY EVENING)
     Route: 065

REACTIONS (5)
  - Hyperglycaemia [Recovered/Resolved]
  - Hypertension [Recovered/Resolved]
  - Haematuria [Recovered/Resolved]
  - Hyperuricaemia [Recovered/Resolved]
  - Product use in unapproved indication [Unknown]
